FAERS Safety Report 8790243 (Version 1)
Quarter: 2012Q4

REPORT INFORMATION
  Report Type: 
  Country: JP (occurrence: JP)
  Receive Date: 20120917
  Receipt Date: 20120917
  Transmission Date: 20130627
  Serious: Yes (Other)
  Sender: FDA-Public Use
  Company Number: JP-NOVOPROD-359619

PATIENT
  Sex: Female

DRUGS (2)
  1. SUREPOST [Suspect]
     Indication: DIABETES MELLITUS
     Route: 048
  2. BASEN [Concomitant]
     Route: 048

REACTIONS (2)
  - Hypoglycaemia [Recovered/Resolved]
  - Depressed level of consciousness [Recovered/Resolved]
